FAERS Safety Report 11495183 (Version 2)
Quarter: 2016Q3

REPORT INFORMATION
  Report Type: Spontaneous
  Country: US (occurrence: US)
  Receive Date: 20150911
  Receipt Date: 20160930
  Transmission Date: 20161109
  Serious: Yes (Death, Hospitalization, Congenital Anomaly, Other)
  Sender: FDA-Public Use
  Company Number: US-APOTEX-2015AP012563

PATIENT
  Sex: Male

DRUGS (1)
  1. PAXIL [Suspect]
     Active Substance: PAROXETINE HYDROCHLORIDE
     Indication: PRODUCT USED FOR UNKNOWN INDICATION
     Route: 064

REACTIONS (18)
  - Patent ductus arteriosus [Unknown]
  - Cardiac failure congestive [Unknown]
  - Cardiac arrest [Unknown]
  - Circulatory collapse [Unknown]
  - Coarctation of the aorta [Unknown]
  - Cardiac disorder [Unknown]
  - Ventricular septal defect [Unknown]
  - Congenital mitral valve stenosis [Fatal]
  - Pneumonia haemophilus [Fatal]
  - Pneumonia moraxella [Fatal]
  - Shone complex [Unknown]
  - Respiratory syncytial virus infection [Fatal]
  - Respiratory distress [Unknown]
  - Bicuspid aortic valve [Unknown]
  - Aortic stenosis [Unknown]
  - Heart disease congenital [Unknown]
  - Ventricular fibrillation [Unknown]
  - Foetal exposure during pregnancy [Unknown]
